FAERS Safety Report 5156699-8 (Version None)
Quarter: 2006Q4

REPORT INFORMATION
  Report Type: 
  Country: None (occurrence: None)
  Receive Date: 20061115
  Receipt Date: 20061027
  Transmission Date: 20070319
  Serious: Yes (Death, Life-Threatening)
  Sender: FDA-Public Use
  Company Number: 231798

PATIENT
  Age: 65 Year
  Sex: Female
  Weight: 59.6 kg

DRUGS (3)
  1. MABTHERA(RITUXIMAB) CONC FOR SOLUTION FOR INFUSION [Suspect]
     Indication: RHEUMATOID ARTHRITIS
     Dosage: 1000 MG, Q2W, INTRAVENOUS
     Route: 042
     Dates: start: 20060105
  2. AZATHIOPRIN (AZATHIOPRINE) [Concomitant]
  3. RISEDRONATE (RISEDRONATE SODIUM) [Concomitant]

REACTIONS (3)
  - DISEASE RECURRENCE [None]
  - PULMONARY FIBROSIS [None]
  - RESPIRATORY FAILURE [None]
